FAERS Safety Report 15392173 (Version 1)
Quarter: 2018Q3

REPORT INFORMATION
  Report Type: Spontaneous
  Country: US (occurrence: US)
  Receive Date: 20180910
  Receipt Date: 20180910
  Transmission Date: 20181010
  Serious: No
  Sender: FDA-Public Use
  Company Number: None

PATIENT
  Age: 55 Year
  Sex: Female
  Weight: 79.38 kg

DRUGS (2)
  1. OTEZLA [Suspect]
     Active Substance: APREMILAST
     Indication: PSORIASIS
     Dosage: TAKE 1 RABLET BY MOUTH TWICE DAILY AS DIRECTED
     Route: 048
     Dates: start: 201608
  2. OTEZLA [Suspect]
     Active Substance: APREMILAST
     Indication: PSORIATIC ARTHROPATHY
     Dosage: TAKE 1 RABLET BY MOUTH TWICE DAILY AS DIRECTED
     Route: 048
     Dates: start: 201608

REACTIONS (1)
  - Pain in jaw [None]
